FAERS Safety Report 8928279 (Version 2)
Quarter: 2012Q4

REPORT INFORMATION
  Report Type: 
  Country: US (occurrence: US)
  Receive Date: 20121128
  Receipt Date: 20121207
  Transmission Date: 20130627
  Serious: Yes (Other)
  Sender: FDA-Public Use
  Company Number: US-PFIZER INC-2012296290

PATIENT

DRUGS (3)
  1. LYRICA [Suspect]
     Dosage: UNK
  2. CYMBALTA [Suspect]
     Dosage: UNK
  3. CYMBALTA [Suspect]
     Dosage: 180 mg a day

REACTIONS (6)
  - Gastric bypass [Unknown]
  - Pulmonary oedema [Unknown]
  - Fluid retention [Unknown]
  - Dyspnoea [Unknown]
  - Oedema peripheral [Unknown]
  - Feeling abnormal [Unknown]
